FAERS Safety Report 16704615 (Version 1)
Quarter: 2019Q3

REPORT INFORMATION
  Report Type: Spontaneous
  Country: US (occurrence: US)
  Receive Date: 20190814
  Receipt Date: 20190814
  Transmission Date: 20191004
  Serious: No
  Sender: FDA-Public Use
  Company Number: US-TEVA-2019-US-1091501

PATIENT
  Sex: Female

DRUGS (2)
  1. LIDOCAINE PATCH 5 % TEVA [Suspect]
     Active Substance: LIDOCAINE HYDROCHLORIDE
     Indication: ARTHRALGIA
     Route: 062
  2. LIDOCAINE PATCH 5 % TEVA [Suspect]
     Active Substance: LIDOCAINE HYDROCHLORIDE
     Indication: BACK PAIN

REACTIONS (5)
  - Application site scar [Unknown]
  - Drug ineffective [Unknown]
  - Product quality issue [Unknown]
  - Application site vesicles [Unknown]
  - Application site pain [Unknown]
